FAERS Safety Report 24153650 (Version 1)
Quarter: 2024Q3

REPORT INFORMATION
  Report Type: Spontaneous
  Country: US (occurrence: None)
  Receive Date: 20240725
  Receipt Date: 20240725
  Transmission Date: 20241017
  Serious: Yes (Death)
  Sender: Public
  Company Number: None

PATIENT
  Age: 75 Year
  Sex: Male

DRUGS (11)
  1. ABIRATERONE [Suspect]
     Active Substance: ABIRATERONE
     Indication: Prostate cancer
     Dosage: FREQUENCY : DAILY;?
     Route: 048
     Dates: start: 20231002
  2. ALBUTEROL [Concomitant]
  3. HYDRALAZINE [Concomitant]
  4. POLYTRIM OPHTH [Concomitant]
  5. PREDNISONE [Concomitant]
  6. FLUTICASONE PROPIONATE\SALMETEROL XINAFOATE [Concomitant]
     Active Substance: FLUTICASONE PROPIONATE\SALMETEROL XINAFOATE
  7. ARMONAIR DIGIHALER [Concomitant]
     Active Substance: FLUTICASONE PROPIONATE
  8. ALBUTEROL HFA INH [Concomitant]
  9. AMIODARONE [Concomitant]
     Active Substance: AMIODARONE
  10. AMMONIUM LAC [Concomitant]
  11. ASPIRIN [Concomitant]

REACTIONS (1)
  - Death [None]

NARRATIVE: CASE EVENT DATE: 20240625
